FAERS Safety Report 15426579 (Version 1)
Quarter: 2018Q3

REPORT INFORMATION
  Report Type: Spontaneous
  Country: US (occurrence: US)
  Receive Date: 20180925
  Receipt Date: 20180925
  Transmission Date: 20181010
  Serious: Yes (Other)
  Sender: FDA-Public Use
  Company Number: US-SA-2018SA262897

PATIENT

DRUGS (1)
  1. ALLEGRA ALLERGY [Suspect]
     Active Substance: FEXOFENADINE HYDROCHLORIDE
     Dosage: 1 UNK

REACTIONS (16)
  - Diabetes mellitus [Unknown]
  - Flatulence [Unknown]
  - Haemorrhoids [Unknown]
  - Tinea pedis [Unknown]
  - Acquired immunodeficiency syndrome [Unknown]
  - Lip disorder [Unknown]
  - Foot deformity [Unknown]
  - Erectile dysfunction [Unknown]
  - Anogenital warts [Unknown]
  - Nasal congestion [Unknown]
  - Tinea cruris [Unknown]
  - Diarrhoea [Unknown]
  - Penis disorder [Unknown]
  - Hiccups [Unknown]
  - Herpes virus infection [Unknown]
  - Scrotal disorder [Unknown]
